FAERS Safety Report 11426461 (Version 1)
Quarter: 2015Q3

REPORT INFORMATION
  Report Type: Spontaneous
  Country: US (occurrence: US)
  Receive Date: 20150821
  Receipt Date: 20150821
  Transmission Date: 20151125
  Serious: No
  Sender: FDA-Public Use
  Company Number: US-ELI_LILLY_AND_COMPANY-US201010001626

PATIENT
  Age: 53 Year
  Sex: Male

DRUGS (1)
  1. HUMULIN R [Suspect]
     Active Substance: INSULIN HUMAN
     Indication: DIABETES MELLITUS
     Dosage: 75 U, 3/D
     Dates: start: 20081101

REACTIONS (10)
  - Drug ineffective [Unknown]
  - Rash [Unknown]
  - Malaise [Unknown]
  - Injection site erythema [Unknown]
  - Pancreatic disorder [Unknown]
  - Injection site pain [Unknown]
  - Injection site swelling [Unknown]
  - Medication error [Unknown]
  - Drug hypersensitivity [Unknown]
  - Injection site mass [Unknown]

NARRATIVE: CASE EVENT DATE: 20081101
